FAERS Safety Report 6156486-8 (Version None)
Quarter: 2009Q2

REPORT INFORMATION
  Report Type: 
  Country: None (occurrence: None)
  Receive Date: 20090413
  Receipt Date: 20081110
  Transmission Date: 20091009
  Serious: Yes (Life-Threatening, Other)
  Sender: FDA-Public Use
  Company Number: OPER20080212

PATIENT
  Age: 22 Year
  Sex: Female
  Weight: 53.978 kg

DRUGS (1)
  1. OPANA ER [Suspect]
     Indication: PAIN
     Dosage: 10 MG, ONE DOSE, PER ORAL
     Route: 048
     Dates: start: 20081021, end: 20081021

REACTIONS (3)
  - DYSPNOEA [None]
  - TACHYPNOEA [None]
  - WHEEZING [None]
